FAERS Safety Report 4424088-7 (Version None)
Quarter: 2004Q3

REPORT INFORMATION
  Report Type: 
  Country: None (occurrence: None)
  Receive Date: 20040812
  Receipt Date: 20040506
  Transmission Date: 20050211
  Serious: Yes (Other)
  Sender: FDA-Public Use
  Company Number: PHNU2004DE01745

PATIENT
  Age: 69 Year
  Sex: Male
  Weight: 75 kg

DRUGS (14)
  1. FORADIL [Suspect]
     Indication: CHRONIC OBSTRUCTIVE AIRWAYS DISEASE
     Dosage: 1 DF, QD
     Route: 048
     Dates: start: 20010101
  2. BERODUAL [Concomitant]
     Indication: CHRONIC OBSTRUCTIVE AIRWAYS DISEASE
     Dosage: UNKNOWN
  3. DECORTIN [Concomitant]
     Dosage: 5 MG, QD
     Route: 048
     Dates: start: 19890101
  4. ISMO [Concomitant]
     Dosage: 20 MG, QD
     Route: 048
     Dates: start: 20010101
  5. DOXEPIN HCL [Concomitant]
     Dosage: 1 DF, QD
     Route: 048
  6. DIGIMERCK [Concomitant]
     Dosage: .05 MG, QD
     Route: 048
     Dates: start: 20010101
  7. LASIX [Concomitant]
     Dosage: 25 MG, QD
     Route: 048
  8. LOCOL [Concomitant]
     Dosage: 40 MG, QD
     Route: 048
  9. FOLIC ACID [Concomitant]
     Dosage: .5 MG, QD
     Route: 048
  10. LORZAAR [Concomitant]
     Dosage: 25 MG, QD
     Route: 048
  11. JUNIK [Concomitant]
     Dosage: 2 DF, QD
  12. CORDAREX [Concomitant]
     Dosage: 1 DF, QD
     Route: 048
  13. PANTOPRAZOLE SODIUM [Concomitant]
     Dosage: 20 MG, QD
     Route: 048
  14. MARCUMAR [Concomitant]
     Dosage: UNK, UNK
     Route: 048

REACTIONS (3)
  - CONDITION AGGRAVATED [None]
  - PARKINSON'S DISEASE [None]
  - PARKINSONIAN REST TREMOR [None]
